FAERS Safety Report 10035844 (Version 1)
Quarter: 2014Q1

REPORT INFORMATION
  Report Type: Spontaneous
  Country: US (occurrence: US)
  Receive Date: 20140325
  Receipt Date: 20140325
  Transmission Date: 20141002
  Serious: No
  Sender: FDA-Public Use
  Company Number: US-BAYER-2014-042837

PATIENT
  Age: 81 Year
  Sex: Female
  Weight: 78.01 kg

DRUGS (5)
  1. ALEVE TABLET [Suspect]
     Indication: HEADACHE
     Dosage: 1 DF, PRN
     Route: 048
     Dates: start: 2013
  2. ALEVE TABLET [Suspect]
     Indication: HEADACHE
     Dosage: 2 DF, UNK
     Route: 048
     Dates: start: 20140318, end: 20140318
  3. SYNTHROID [Concomitant]
     Dosage: UNK
  4. PRINIVIL [Concomitant]
     Dosage: UNK
  5. LIPITOR [Concomitant]
     Dosage: UNK

REACTIONS (1)
  - Nervousness [Not Recovered/Not Resolved]
